FAERS Safety Report 5216824-7 (Version None)
Quarter: 2007Q1

REPORT INFORMATION
  Report Type: 
  Country: None (occurrence: None)
  Receive Date: 20070119
  Receipt Date: 20070105
  Transmission Date: 20070707
  Serious: Yes (Other)
  Sender: FDA-Public Use
  Company Number: DSA_29218_2007

PATIENT
  Sex: Female

DRUGS (4)
  1. CARDIZEM CD [Suspect]
     Indication: HYPERTENSION
     Dosage: 120 MG Q DAY PO
     Route: 048
     Dates: end: 20060101
  2. CARDIZEM CD [Suspect]
     Indication: HYPERTENSION
     Dosage: 240 MG Q DAY PO
     Route: 048
     Dates: start: 20060101
  3. DIOVAN HCT [Concomitant]
  4. DIOVAN HCT [Concomitant]

REACTIONS (2)
  - HEPATIC ENZYME INCREASED [None]
  - HYPONATRAEMIA [None]
